FAERS Safety Report 9068364 (Version 2)
Quarter: 2013Q1

REPORT INFORMATION
  Report Type: Spontaneous
  Country: GB (occurrence: GB)
  Receive Date: 20130128
  Receipt Date: 20130204
  Transmission Date: 20140127
  Serious: Yes (Other)
  Sender: FDA-Public Use
  Company Number: GB-009507513-1301GBR011844

PATIENT
  Sex: 0

DRUGS (1)
  1. JANUVIA [Suspect]
     Dosage: 100 MG, QD
     Route: 048

REACTIONS (1)
  - Neoplasm malignant [Unknown]
